FAERS Safety Report 22321016 (Version 3)
Quarter: 2024Q3

REPORT INFORMATION
  Report Type: Report from Study
  Country: US (occurrence: US)
  Receive Date: 20230515
  Receipt Date: 20240925
  Transmission Date: 20241017
  Serious: Yes (Other)
  Sender: NOVARTIS
  Company Number: US-002147023-NVSC2023US110686

PATIENT
  Sex: Male

DRUGS (1)
  1. KESIMPTA [Suspect]
     Active Substance: OFATUMUMAB
     Indication: Relapsing multiple sclerosis
     Dosage: 20 MG, QMO
     Route: 058
     Dates: start: 20230404

REACTIONS (9)
  - Multiple sclerosis relapse [Unknown]
  - Memory impairment [Unknown]
  - Limb discomfort [Unknown]
  - Fatigue [Unknown]
  - Multiple sclerosis [Unknown]
  - Influenza like illness [Unknown]
  - Ankle fracture [Unknown]
  - Dermatitis contact [Unknown]
  - Inflammation [Unknown]
